FAERS Safety Report 15075447 (Version 2)
Quarter: 2023Q4

REPORT INFORMATION
  Report Type: Report from Study
  Country: US (occurrence: US)
  Receive Date: 20180627
  Receipt Date: 20231128
  Transmission Date: 20240109
  Serious: No
  Sender: FDA-Public Use
  Company Number: US-SAOL THERAPEUTICS-2018SAO00667

PATIENT
  Age: 78 Year
  Sex: Female

DRUGS (9)
  1. BACLOFEN [Suspect]
     Active Substance: BACLOFEN
     Route: 037
  2. DILAUDID [Suspect]
     Active Substance: HYDROMORPHONE HYDROCHLORIDE
     Dosage: 0.879 MG, \DAY
     Route: 037
     Dates: start: 20170412
  3. DILAUDID [Suspect]
     Active Substance: HYDROMORPHONE HYDROCHLORIDE
     Dosage: 1.241 MG, \DAY; TOTAL MAXIMUM DAILY DOSE
     Route: 037
     Dates: start: 20170412
  4. DILAUDID [Suspect]
     Active Substance: HYDROMORPHONE HYDROCHLORIDE
     Dosage: 0.959 MG, \DAY
     Route: 037
     Dates: start: 20170524
  5. DILAUDID [Suspect]
     Active Substance: HYDROMORPHONE HYDROCHLORIDE
     Dosage: 1.321 MG, \DAY; TOTAL MAXIMUM DAILY DOSE
     Route: 037
     Dates: start: 20170524
  6. BUPIVACAINE [Suspect]
     Active Substance: BUPIVACAINE
     Dosage: 17.581 MG, \DAY
     Route: 037
     Dates: start: 20170412
  7. BUPIVACAINE [Suspect]
     Active Substance: BUPIVACAINE
     Dosage: 24.837 MG, \DAY; TOTAL MAXIMUM DAILY DOSE
     Route: 037
     Dates: start: 20170412
  8. BUPIVACAINE [Suspect]
     Active Substance: BUPIVACAINE
     Dosage: 19.190 MG, \DAY
     Route: 037
     Dates: start: 20170524
  9. BUPIVACAINE [Suspect]
     Active Substance: BUPIVACAINE
     Dosage: 26.423 MG, \DAY; TOTAL MAXIMUM DAILY DOSE
     Route: 037
     Dates: start: 20170524

REACTIONS (2)
  - Blood pressure fluctuation [Not Recovered/Not Resolved]
  - Nausea [Not Recovered/Not Resolved]

NARRATIVE: CASE EVENT DATE: 20170630
